FAERS Safety Report 12999512 (Version 3)
Quarter: 2017Q1

REPORT INFORMATION
  Report Type: Report from Study
  Country: CO (occurrence: CO)
  Receive Date: 20161205
  Receipt Date: 20170103
  Transmission Date: 20170428
  Serious: Yes (Other)
  Sender: FDA-Public Use
  Company Number: CO-SA-2016SA199231

PATIENT
  Age: 28 Year
  Sex: Male
  Weight: 60 kg

DRUGS (1)
  1. LEMTRADA [Suspect]
     Active Substance: ALEMTUZUMAB
     Indication: MULTIPLE SCLEROSIS
     Route: 041
     Dates: start: 20160620, end: 20160624

REACTIONS (8)
  - Urine analysis abnormal [Unknown]
  - Bacterial test [Unknown]
  - Lymphopenia [Not Recovered/Not Resolved]
  - Haematocrit increased [Unknown]
  - Haemoglobin increased [Unknown]
  - Leukopenia [Recovered/Resolved]
  - Hyperchromasia [Not Recovered/Not Resolved]
  - Neutrophil count increased [Unknown]

NARRATIVE: CASE EVENT DATE: 20161021
